FAERS Safety Report 10218740 (Version 3)
Quarter: 2014Q3

REPORT INFORMATION
  Report Type: Spontaneous
  Country: CA (occurrence: None)
  Receive Date: 20140603
  Receipt Date: 20140805
  Transmission Date: 20150326
  Serious: Yes (Death, Hospitalization, Other)
  Sender: FDA-Public Use
  Company Number: VAL_03154_2014

PATIENT
  Age: 95 Year
  Sex: Female

DRUGS (3)
  1. DILAUDID [Suspect]
     Active Substance: HYDROMORPHONE HYDROCHLORIDE
     Indication: PRODUCT USED FOR UNKNOWN INDICATION
     Dosage: (DF)?
     Dates: start: 20140520
  2. METOPROLOL [Concomitant]
     Active Substance: METOPROLOL
  3. LOPRESSOR [Suspect]
     Active Substance: METOPROLOL TARTRATE
     Indication: PRODUCT USED FOR UNKNOWN INDICATION
     Dosage: (DF)?
     Dates: start: 2004, end: 20140514

REACTIONS (15)
  - Peripheral coldness [None]
  - Bronchospasm [None]
  - Sleep disorder [None]
  - Pallor [None]
  - Medication error [None]
  - Drug interaction [None]
  - Cyanosis [None]
  - Agitation [None]
  - Overdose [None]
  - Respiratory disorder [None]
  - Dyspnoea [None]
  - Myocardial infarction [None]
  - Restlessness [None]
  - Dehydration [None]
  - Hypotension [None]

NARRATIVE: CASE EVENT DATE: 201404
